FAERS Safety Report 5796259-9 (Version None)
Quarter: 2008Q3

REPORT INFORMATION
  Report Type: 
  Country: None (occurrence: None)
  Receive Date: 20080701
  Receipt Date: 20080624
  Transmission Date: 20090109
  Serious: Yes (Other)
  Sender: FDA-Public Use
  Company Number: US-ASTRAZENECA-2008UW12697

PATIENT
  Age: 57 Year
  Sex: Female

DRUGS (4)
  1. ARIMIDEX [Suspect]
     Indication: BREAST CANCER
     Route: 048
     Dates: start: 20040101
  2. LIDOCAINE [Concomitant]
  3. CORTISONE [Concomitant]
  4. MULTI-VITAMIN [Concomitant]

REACTIONS (5)
  - CARPAL TUNNEL SYNDROME [None]
  - MUSCLE SPASMS [None]
  - NERVE COMPRESSION [None]
  - OSTEOPOROSIS [None]
  - TENDONITIS [None]
